FAERS Safety Report 5897658-7 (Version None)
Quarter: 2008Q3

REPORT INFORMATION
  Report Type: 
  Country: None (occurrence: None)
  Receive Date: 20080925
  Receipt Date: 20080922
  Transmission Date: 20090109
  Serious: Yes (Death)
  Sender: FDA-Public Use
  Company Number: AR-ASTRAZENECA-2008UW19941

PATIENT
  Age: 67 Year
  Sex: Female

DRUGS (3)
  1. OMEPRAZOLE [Suspect]
     Route: 048
     Dates: start: 20080918, end: 20080920
  2. RELIVERAN [Concomitant]
     Dates: start: 20080917
  3. RANITIDINE [Concomitant]
     Dates: start: 20080917

REACTIONS (1)
  - PURPURA [None]
